FAERS Safety Report 14482384 (Version 3)
Quarter: 2019Q2

REPORT INFORMATION
  Report Type: Spontaneous
  Country: US (occurrence: US)
  Receive Date: 20180202
  Receipt Date: 20190614
  Transmission Date: 20190711
  Serious: No
  Sender: FDA-Public Use
  Company Number: US-BIOGEN-2018BI00516791

PATIENT
  Sex: Female

DRUGS (1)
  1. TYSABRI [Suspect]
     Active Substance: NATALIZUMAB
     Indication: MULTIPLE SCLEROSIS
     Route: 050
     Dates: start: 20061023

REACTIONS (7)
  - Stress [Unknown]
  - Cystitis [Unknown]
  - Motor dysfunction [Unknown]
  - Gait disturbance [Unknown]
  - Product dose omission [Unknown]
  - Urticaria [Unknown]
  - Fatigue [Unknown]
